FAERS Safety Report 23039119 (Version 1)
Quarter: 2023Q4

REPORT INFORMATION
  Report Type: Spontaneous
  Country: US (occurrence: None)
  Receive Date: 20231006
  Receipt Date: 20231006
  Transmission Date: 20240109
  Serious: No
  Sender: FDA-Public Use
  Company Number: None

PATIENT
  Sex: Female

DRUGS (1)
  1. BENLYSTA [Suspect]
     Active Substance: BELIMUMAB
     Indication: Systemic lupus erythematosus
     Dosage: OTHER FREQUENCY : EVERY7DAYS;?
     Route: 058
     Dates: start: 202302

REACTIONS (7)
  - Drug ineffective [None]
  - Pruritus [None]
  - Alopecia [None]
  - Pain of skin [None]
  - Facial pain [None]
  - Pruritus [None]
  - Heavy exposure to ultraviolet light [None]
